FAERS Safety Report 19615170 (Version 1)
Quarter: 2021Q3

REPORT INFORMATION
  Report Type: Spontaneous
  Country: GR (occurrence: GR)
  Receive Date: 20210727
  Receipt Date: 20210727
  Transmission Date: 20211014
  Serious: Yes (Hospitalization, Other)
  Sender: FDA-Public Use
  Company Number: GR-INCYTE CORPORATION-2021IN006561

PATIENT

DRUGS (1)
  1. JAKAVI [Suspect]
     Active Substance: RUXOLITINIB
     Indication: MYELOFIBROSIS
     Dosage: 15 MG, BID
     Route: 065

REACTIONS (5)
  - Pulmonary mass [Unknown]
  - Pelvic mass [Unknown]
  - Mycobacterium avium complex infection [Recovered/Resolved]
  - Breast mass [Unknown]
  - Mass [Unknown]
